FAERS Safety Report 5793202-3 (Version None)
Quarter: 2008Q2

REPORT INFORMATION
  Report Type: 
  Country: None (occurrence: None)
  Receive Date: 20080626
  Receipt Date: 20080626
  Transmission Date: 20081010
  Serious: Yes (Disabling)
  Sender: FDA-Public Use
  Company Number: None

PATIENT
  Age: 60 Year
  Sex: Male
  Weight: 72.5755 kg

DRUGS (1)
  1. LEVAQUIN [Suspect]
     Indication: PROPHYLAXIS
     Dosage: 750 MG 1 DAILY PO
     Route: 048
     Dates: start: 20080618, end: 20080620

REACTIONS (2)
  - GAIT DISTURBANCE [None]
  - TENDON PAIN [None]
